FAERS Safety Report 6005905-6 (Version None)
Quarter: 2008Q4

REPORT INFORMATION
  Report Type: 
  Country: None (occurrence: None)
  Receive Date: 20081215
  Receipt Date: 20081204
  Transmission Date: 20090506
  Serious: Yes (Death, Hospitalization, Other)
  Sender: FDA-Public Use
  Company Number: 54959

PATIENT
  Age: 15 Year
  Sex: Male

DRUGS (2)
  1. CYCLOSPORINE [Suspect]
     Indication: WISKOTT-ALDRICH SYNDROME
     Dosage: 3MG/KG/DAY
  2. METHOTREXATE [Suspect]
     Indication: WISKOTT-ALDRICH SYNDROME
     Dosage: 15MG, 10MG; DAY+1, DAYS +3, +6, AND +11

REACTIONS (4)
  - CHRONIC GRAFT VERSUS HOST DISEASE [None]
  - EPSTEIN-BARR VIRUS ASSOCIATED LYMPHOPROLIFERATIVE DISORDER [None]
  - INFECTION IN AN IMMUNOCOMPROMISED HOST [None]
  - PROGRESSIVE MULTIFOCAL LEUKOENCEPHALOPATHY [None]
